FAERS Safety Report 5663221-6 (Version None)
Quarter: 2008Q1

REPORT INFORMATION
  Report Type: 
  Country: None (occurrence: None)
  Receive Date: 20080313
  Receipt Date: 20080301
  Transmission Date: 20080703
  Serious: Yes (Other)
  Sender: FDA-Public Use
  Company Number: US-PFIZER INC-2008019675

PATIENT
  Sex: Female
  Weight: 59 kg

DRUGS (7)
  1. LYRICA [Suspect]
     Indication: FIBROMYALGIA
  2. PREDNISONE TAB [Concomitant]
  3. AMBIEN [Concomitant]
  4. LORAZEPAM [Concomitant]
  5. AMITRIPTYLINE HCL [Concomitant]
  6. RANITIDINE [Concomitant]
  7. DARVOCET [Concomitant]

REACTIONS (3)
  - OEDEMA PERIPHERAL [None]
  - RASH [None]
  - STAPHYLOCOCCAL INFECTION [None]
